FAERS Safety Report 25399640 (Version 1)
Quarter: 2025Q2

REPORT INFORMATION
  Report Type: Spontaneous
  Country: CO (occurrence: CO)
  Receive Date: 20250605
  Receipt Date: 20250605
  Transmission Date: 20250716
  Serious: Yes (Other)
  Sender: SANDOZ
  Company Number: CO-002147023-NVSC2023CO058304

PATIENT
  Sex: Male
  Weight: 70 kg

DRUGS (7)
  1. METFORMIN [Suspect]
     Active Substance: METFORMIN HYDROCHLORIDE
     Indication: Diabetes mellitus
     Dosage: 2 DOSAGE FORM, QD
     Route: 065
  2. TASIGNA [Suspect]
     Active Substance: NILOTINIB
     Indication: Chronic myeloid leukaemia
     Dosage: 150 MG, Q12H (1 OF 150 MG)
     Route: 048
     Dates: start: 20220924, end: 20240405
  3. TASIGNA [Suspect]
     Active Substance: NILOTINIB
     Indication: Philadelphia chromosome positive
     Dosage: 200 MG, Q12H
     Route: 048
     Dates: start: 20240405
  4. TASIGNA [Suspect]
     Active Substance: NILOTINIB
     Dosage: 300 MG, Q12H
     Route: 048
  5. TASIGNA [Suspect]
     Active Substance: NILOTINIB
     Dosage: 350 MG, Q12H (1 X 150 MG AND 1 X 200  MG)
     Route: 048
     Dates: start: 202412
  6. TASIGNA [Suspect]
     Active Substance: NILOTINIB
     Route: 048
     Dates: start: 202503
  7. TASIGNA [Suspect]
     Active Substance: NILOTINIB
     Indication: Leukaemia
     Dosage: 400 MG, Q12H
     Route: 048

REACTIONS (15)
  - Diabetic eye disease [Unknown]
  - Blindness [Unknown]
  - Hypersensitivity [Recovered/Resolved]
  - Retinal detachment [Recovered/Resolved]
  - Diabetic coma [Unknown]
  - Chronic myeloid leukaemia [Unknown]
  - Condition aggravated [Unknown]
  - Pain [Recovered/Resolved]
  - Illness [Unknown]
  - Weight increased [Unknown]
  - Influenza [Recovered/Resolved]
  - Vision blurred [Not Recovered/Not Resolved]
  - Pain in extremity [Recovered/Resolved]
  - Malaise [Unknown]
  - Off label use [Unknown]

NARRATIVE: CASE EVENT DATE: 20230101
